FAERS Safety Report 13699871 (Version 2)
Quarter: 2019Q2

REPORT INFORMATION
  Report Type: Spontaneous
  Country: CO (occurrence: CO)
  Receive Date: 20170629
  Receipt Date: 20190410
  Transmission Date: 20190711
  Serious: Yes (Other)
  Sender: FDA-Public Use
  Company Number: CO-AMGEN-COLSP2015012091

PATIENT
  Age: 64 Year
  Sex: Female

DRUGS (1)
  1. ENBREL [Suspect]
     Active Substance: ETANERCEPT
     Indication: RHEUMATOID ARTHRITIS
     Dosage: 50 MILLIGRAM, QWK
     Route: 058
     Dates: start: 2004

REACTIONS (8)
  - Feeling abnormal [Unknown]
  - Osteoarthritis [Unknown]
  - Product administration error [Unknown]
  - Sjogren^s syndrome [Unknown]
  - Asthma [Unknown]
  - Product storage error [Unknown]
  - Reflux gastritis [Unknown]
  - Gastritis [Unknown]

NARRATIVE: CASE EVENT DATE: 2009
